FAERS Safety Report 6174357-8 (Version None)
Quarter: 2009Q2

REPORT INFORMATION
  Report Type: 
  Country: None (occurrence: None)
  Receive Date: 20090430
  Receipt Date: 20090429
  Transmission Date: 20091009
  Serious: Yes (Death)
  Sender: FDA-Public Use
  Company Number: PHHY2009KR11204

PATIENT
  Sex: Female

DRUGS (3)
  1. SANDIMMUNE [Suspect]
     Indication: STEM CELL TRANSPLANT
     Dosage: 1.5 MG/KG, BID
     Dates: start: 20060706, end: 20061115
  2. SANDIMMUNE [Suspect]
     Indication: APLASTIC ANAEMIA
  3. ALEMTUZUMAB [Suspect]
     Indication: BONE MARROW FAILURE

REACTIONS (3)
  - DRUG INEFFECTIVE [None]
  - PNEUMONIA [None]
  - PYREXIA [None]
